FAERS Safety Report 8389327 (Version 2)
Quarter: 2012Q4

REPORT INFORMATION
  Report Type: 
  Country: JP (occurrence: JP)
  Receive Date: 20120203
  Receipt Date: 20120904
  Transmission Date: 20130627
  Serious: Yes (Other)
  Sender: FDA-Public Use
  Company Number: JP-ROCHE-1036037

PATIENT
  Age: 77 Year
  Sex: Male

DRUGS (3)
  1. PEGASYS [Suspect]
     Indication: HEPATITIS C
     Dosage: 20 disclination administering
     Route: 058
  2. PLAVIX [Concomitant]
     Dosage: Dosage is uncertain.
     Route: 048
  3. EDARAVONE [Concomitant]
     Dosage: Dosage is uncertain.
     Route: 042

REACTIONS (1)
  - Cerebral infarction [Unknown]
